FAERS Safety Report 19929393 (Version 1)
Quarter: 2021Q4

REPORT INFORMATION
  Report Type: Spontaneous
  Country: FR (occurrence: FR)
  Receive Date: 20211007
  Receipt Date: 20211007
  Transmission Date: 20220303
  Serious: Yes (Life-Threatening, Other)
  Sender: FDA-Public Use
  Company Number: None

PATIENT
  Age: 58 Year
  Sex: Male
  Weight: 72 kg

DRUGS (6)
  1. MIDAZOLAM [Interacting]
     Active Substance: MIDAZOLAM
     Indication: Product used for unknown indication
     Dosage: UNK (NON PR?CIS?)
     Route: 042
  2. SUFENTANIL [Interacting]
     Active Substance: SUFENTANIL
     Indication: Product used for unknown indication
     Dosage: UNK (NON PR?CIS?)
     Route: 042
  3. LYRICA [Interacting]
     Active Substance: PREGABALIN
     Indication: Epilepsy
     Dosage: 2 DOSAGE FORM, QD
     Route: 048
     Dates: end: 20210410
  4. ERYTHROMYCIN [Interacting]
     Active Substance: ERYTHROMYCIN
     Indication: Pneumonia
     Dosage: UNK (NON PR?CIS?)
     Route: 042
     Dates: start: 20210402, end: 20210407
  5. VORICONAZOLE [Interacting]
     Active Substance: VORICONAZOLE
     Indication: Pneumonia
     Dosage: UNK (NON PR?CIS?)
     Route: 042
     Dates: start: 20210330, end: 20210407
  6. ESLICARBAZEPINE ACETATE [Interacting]
     Active Substance: ESLICARBAZEPINE ACETATE
     Indication: Epilepsy
     Dosage: 1.5 DOSAGE FORM, QD
     Route: 048
     Dates: end: 20210410

REACTIONS (2)
  - Bradycardia [Recovered/Resolved]
  - Drug interaction [Unknown]

NARRATIVE: CASE EVENT DATE: 20210407
